FAERS Safety Report 5119040-2 (Version None)
Quarter: 2006Q3

REPORT INFORMATION
  Report Type: 
  Country: None (occurrence: None)
  Receive Date: 20060927
  Receipt Date: 20060915
  Transmission Date: 20061208
  Serious: Yes (Other)
  Sender: FDA-Public Use
  Company Number: 2006112038

PATIENT
  Age: 64 Year
  Sex: Male
  Weight: 74.8435 kg

DRUGS (9)
  1. VIAGRA [Suspect]
     Indication: ERECTILE DYSFUNCTION
     Dosage: 50 MG (50 MG, 1 AS NECESSARY)
     Dates: start: 20021001
  2. PLAVIX [Concomitant]
  3. TOPROL-XL [Concomitant]
  4. LIPITOR [Concomitant]
  5. CYCLOSPORINE [Concomitant]
  6. REFRESH TEARS (CARMELLOSE SODIUM) [Concomitant]
  7. VITAMINS [Concomitant]
  8. SELENIUM SULFIDE [Concomitant]
  9. ASPIRIN [Concomitant]

REACTIONS (3)
  - CONDITION AGGRAVATED [None]
  - FLUSHING [None]
  - VISUAL ACUITY REDUCED [None]
